FAERS Safety Report 9150476 (Version 1)
Quarter: 2013Q1

REPORT INFORMATION
  Report Type: Spontaneous
  Country: US (occurrence: None)
  Receive Date: 20130131
  Receipt Date: 20130131
  Transmission Date: 20140127
  Serious: No
  Sender: FDA-Public Use
  Company Number: FK201300185

PATIENT
  Age: 73 Year
  Sex: Male

DRUGS (7)
  1. AZITHROMYCIN (MANUFACTURER UNKNOWN) (AZITHROMYCIN) (AZITHROMYCIN) [Suspect]
     Indication: BRONCHITIS
     Route: 048
  2. SIMVASTATIN (SIMVASTATIN) [Suspect]
  3. ALLOPURINOL [Concomitant]
  4. PREDNISONE (PREDNISONE) [Concomitant]
  5. LABETALOL (LABETALOL) [Concomitant]
  6. BUMETANIDE (BUMETANIDE) [Concomitant]
  7. GLARGINE INSULIN (INSULIN GLARGINE) [Concomitant]

REACTIONS (2)
  - Drug interaction [None]
  - Rhabdomyolysis [None]
